FAERS Safety Report 9915065 (Version 1)
Quarter: 2014Q1

REPORT INFORMATION
  Report Type: Report from Study
  Country: US (occurrence: US)
  Receive Date: 20140220
  Receipt Date: 20140220
  Transmission Date: 20141002
  Serious: Yes (Hospitalization)
  Sender: FDA-Public Use
  Company Number: US-ABBVIE-14P-163-1201453-00

PATIENT
  Sex: Female
  Weight: 83.08 kg

DRUGS (8)
  1. HUMIRA [Suspect]
     Indication: PSORIASIS
     Dates: start: 201312, end: 201312
  2. HUMIRA [Suspect]
     Dosage: TWO WEEKS AFTER 80 MG DOSE
     Dates: start: 201401, end: 201401
  3. AMLODIPINE [Concomitant]
     Indication: HYPERTENSION
  4. FERROUS SULFATE [Concomitant]
     Indication: BLOOD IRON DECREASED
  5. HYDROXYLEVOTHYROXINE [Concomitant]
     Indication: HYPOTHYROIDISM
  6. NEXIUM [Concomitant]
     Indication: GASTROOESOPHAGEAL REFLUX DISEASE
  7. LOSARTAN [Concomitant]
     Indication: HYPERTENSION
  8. VITAMIN B1 [Concomitant]
     Indication: VITAMIN SUPPLEMENTATION

REACTIONS (7)
  - Skin burning sensation [Recovered/Resolved]
  - Rash [Recovering/Resolving]
  - Dyspnoea [Recovered/Resolved]
  - Psoriasis [Unknown]
  - Cardiac failure congestive [Unknown]
  - Hypersensitivity [Unknown]
  - Skin exfoliation [Not Recovered/Not Resolved]
